FAERS Safety Report 15772507 (Version 4)
Quarter: 2019Q3

REPORT INFORMATION
  Report Type: Spontaneous
  Country: JP (occurrence: JP)
  Receive Date: 20181228
  Receipt Date: 20190725
  Transmission Date: 20191004
  Serious: Yes (Death, Other)
  Sender: FDA-Public Use
  Company Number: JP-009507513-1812JPN003731J

PATIENT
  Age: 76 Year
  Sex: Male
  Weight: 67 kg

DRUGS (11)
  1. LIPITOR [Concomitant]
     Active Substance: ATORVASTATIN CALCIUM
     Dosage: 1 DOSAGE FORM, QD
     Route: 048
  2. KEYTRUDA [Suspect]
     Active Substance: PEMBROLIZUMAB
     Indication: NON-SMALL CELL LUNG CANCER
     Dosage: 200 MILLIGRAM, Q3W
     Route: 041
     Dates: start: 20181218, end: 20181218
  3. MUCODYNE [Concomitant]
     Active Substance: CARBOCYSTEINE
     Dosage: 500 MILLIGRAM, TID
     Route: 048
     Dates: start: 20181003
  4. CLEANAL [Concomitant]
     Active Substance: FUDOSTEINE
     Dosage: 400 MILLIGRAM, TID
     Route: 048
  5. ADOAIR [Concomitant]
     Active Substance: FLUTICASONE PROPIONATE\SALMETEROL XINAFOATE
     Dosage: UNK, BID
  6. FERROMIA [Concomitant]
     Active Substance: SODIUM FERROUS CITRATE
     Dosage: 2 DOSAGE FORM, QD
     Route: 048
     Dates: start: 20160727
  7. LASIX [Concomitant]
     Active Substance: FUROSEMIDE
     Dosage: 20 MILLIGRAM, BID
     Route: 048
     Dates: start: 20160209
  8. NOVORAPID [Concomitant]
     Active Substance: INSULIN ASPART
     Dosage: UNK, TID
     Route: 058
     Dates: start: 20181109
  9. LIPACREON [Concomitant]
     Active Substance: PANCRELIPASE
     Dosage: 150 MILLIGRAM, TID
     Route: 048
     Dates: start: 20160205
  10. SUREPOST [Concomitant]
     Active Substance: REPAGLINIDE
     Dosage: 1 DOSAGE FORM, TID
     Route: 048
     Dates: start: 20180110
  11. CINAL [Concomitant]
     Active Substance: ASCORBIC ACID\CALCIUM PANTOTHENATE
     Dosage: 1 DOSAGE FORM, BID
     Route: 048
     Dates: start: 20160727

REACTIONS (4)
  - Loss of consciousness [Unknown]
  - Death [Fatal]
  - Malignant neoplasm progression [Unknown]
  - Pleural effusion [Unknown]

NARRATIVE: CASE EVENT DATE: 20181219
